FAERS Safety Report 11074156 (Version 3)
Quarter: 2015Q2

REPORT INFORMATION
  Report Type: Spontaneous
  Country: US (occurrence: None)
  Receive Date: 20150427
  Receipt Date: 20150602
  Transmission Date: 20150821
  Serious: Yes (Death, Other)
  Sender: FDA-Public Use
  Company Number: BTG00218

PATIENT
  Age: 79 Year
  Sex: Male
  Weight: 79 kg

DRUGS (7)
  1. VORAXAZE [Suspect]
     Active Substance: GLUCARPIDASE
     Indication: TOXICITY TO VARIOUS AGENTS
     Dosage: ??
     Route: 042
  2. HEPARIN [Concomitant]
     Active Substance: HEPARIN SODIUM
  3. METHOTREXATE (METHOTREXATE SODIUM) [Suspect]
     Active Substance: METHOTREXATE SODIUM
     Indication: B-CELL LYMPHOMA
     Dosage: 12 MG, SINGLE, INTRATHECAL?
     Route: 037
  4. LEUCOVORIN (CALCIUM FOLINATE) [Concomitant]
     Active Substance: LEUCOVORIN
  5. ENOXAPARIN (ENOXAPARIN SODIUM) [Concomitant]
  6. OMEPRAZOLE (OMEPRAZOLE) [Concomitant]
     Active Substance: OMEPRAZOLE
  7. BICARBONATE SODIUM (SODIUM BICARBONATE) [Concomitant]

REACTIONS (9)
  - Rebound effect [None]
  - Renal failure [None]
  - Subdural haematoma [None]
  - Drug level increased [None]
  - Toxicity to various agents [None]
  - Inappropriate schedule of drug administration [None]
  - Pancytopenia [None]
  - Continuous haemodiafiltration [None]
  - Fluid overload [None]
